FAERS Safety Report 7960908-7 (Version None)
Quarter: 2011Q4

REPORT INFORMATION
  Report Type: 
  Country: None (occurrence: None)
  Receive Date: 20111201
  Receipt Date: 20111118
  Transmission Date: 20120403
  Serious: Yes (Hospitalization, Other)
  Sender: FDA-Public Use
  Company Number: 2011MA015998

PATIENT
  Age: 72 Year
  Sex: Female
  Weight: 48 kg

DRUGS (5)
  1. AMILORIDE HYDROCHLORIDE [Concomitant]
  2. HYDROCHLOROTHIAZIDE [Suspect]
     Dosage: 50 MG;QD
  3. BISOPROLOL FUMARATE [Concomitant]
  4. LISINOPRIL [Concomitant]
  5. LEVOTHYROXINE SODIUM [Concomitant]

REACTIONS (8)
  - HYPONATRAEMIA [None]
  - RENAL FAILURE ACUTE [None]
  - DEPRESSED LEVEL OF CONSCIOUSNESS [None]
  - URINARY TRACT INFECTION [None]
  - HYPOCHROMIC ANAEMIA [None]
  - DEHYDRATION [None]
  - FALL [None]
  - RENAL FAILURE CHRONIC [None]
